FAERS Safety Report 7991672-3 (Version None)
Quarter: 2011Q4

REPORT INFORMATION
  Report Type: 
  Country: None (occurrence: None)
  Receive Date: 20111219
  Receipt Date: 20111213
  Transmission Date: 20120403
  Serious: Yes (Other)
  Sender: FDA-Public Use
  Company Number: PHHY2011AR109513

PATIENT
  Sex: Female

DRUGS (1)
  1. ZOLEDRONOC ACID [Suspect]
     Indication: OSTEOPOROSIS
     Dosage: UNK
     Route: 042
     Dates: start: 20111001

REACTIONS (5)
  - HEPATIC ENZYME INCREASED [None]
  - HEPATOMEGALY [None]
  - DIARRHOEA [None]
  - PYREXIA [None]
  - ASTHENIA [None]
